FAERS Safety Report 10579857 (Version 8)
Quarter: 2015Q3

REPORT INFORMATION
  Report Type: Report from Study
  Country: JP (occurrence: JP)
  Receive Date: 20141112
  Receipt Date: 20150806
  Transmission Date: 20151125
  Serious: Yes (Hospitalization, Other)
  Sender: FDA-Public Use
  Company Number: JP-GLAXOSMITHKLINE-B1007725B

PATIENT
  Age: 76 Year
  Sex: Male

DRUGS (18)
  1. DIPHENHYDRAMINE LAURILSULFATE [Concomitant]
     Indication: ECZEMA
     Dosage: 1 UNK, BID
     Dates: start: 2014, end: 20140616
  2. CLOBETASOL PROPIONATE. [Concomitant]
     Active Substance: CLOBETASOL PROPIONATE
     Indication: ECZEMA
     Dosage: 1 UNK, DAILY
     Route: 062
     Dates: start: 201406, end: 20150118
  3. ACETAMINOPHEN. [Concomitant]
     Active Substance: ACETAMINOPHEN
     Indication: PYREXIA
  4. DEXAMETHASONE VALERATE [Concomitant]
     Active Substance: DEXAMETHASONE VALERATE
     Indication: ECZEMA
     Dosage: 1 UNK, PRN
     Route: 062
     Dates: start: 20140110, end: 20140616
  5. SALBUTAMOL SULFATE [Concomitant]
     Active Substance: ALBUTEROL SULFATE
     Indication: CHRONIC OBSTRUCTIVE PULMONARY DISEASE
     Dosage: 100 ?G, PRN
     Route: 055
     Dates: start: 20130206, end: 20150218
  6. ACETAMINOPHEN. [Concomitant]
     Active Substance: ACETAMINOPHEN
     Indication: PYREXIA
     Dosage: 200 MG, PRN
     Route: 048
     Dates: start: 20140615, end: 20140619
  7. FELBINAC [Concomitant]
     Active Substance: FELBINAC
     Indication: BACK PAIN
     Dosage: 1 PATCH, DAILY
     Route: 062
     Dates: start: 20140617, end: 20140710
  8. FELBINAC [Concomitant]
     Active Substance: FELBINAC
     Indication: BACK PAIN
  9. SOLACET F [Concomitant]
     Dosage: 500 ML, DAILY
     Route: 042
     Dates: start: 20140620, end: 20140625
  10. FLUTICASONE FUROATE + VILANTEROL TRIFENATATE [Suspect]
     Active Substance: FLUTICASONE FUROATE\VILANTEROL TRIFENATATE
     Indication: CHRONIC OBSTRUCTIVE PULMONARY DISEASE
     Dosage: UNK
     Route: 055
     Dates: start: 20130213
  11. PREDNISOLONE ACETATE. [Concomitant]
     Active Substance: PREDNISOLONE ACETATE
     Indication: ECZEMA
     Dosage: 1 UNK, PRN
     Route: 062
     Dates: start: 20140110, end: 20140616
  12. HYDROXYZINE PAMOATE. [Concomitant]
     Active Substance: HYDROXYZINE PAMOATE
     Indication: ECZEMA
     Dosage: 25 MG, DAILY
     Route: 048
     Dates: start: 201405, end: 20141218
  13. HEPARINOID [Concomitant]
     Active Substance: CHONDROITIN SULFATE (BOVINE)
     Indication: ECZEMA
     Dosage: 1 UNK, PRN
     Route: 062
     Dates: start: 20140430, end: 20140616
  14. ISOTONIC SODIUM CHLORIDE SOLUTION [Concomitant]
     Active Substance: SODIUM CHLORIDE
     Indication: VEHICLE SOLUTION USE
     Dosage: 100 ML, TID
     Route: 042
     Dates: start: 20140620, end: 20140626
  15. CARBAZOCHROME SODIUM SULFONATE HYDRATE [Concomitant]
     Indication: HAEMOSTASIS
     Dosage: 50 MG, DAILY
     Route: 042
     Dates: start: 20140615, end: 20140615
  16. SENNOSIDE A+B CALCIUM [Concomitant]
     Active Substance: SENNOSIDES A AND B
     Indication: CONSTIPATION
     Dosage: 24 MG, PRN
     Route: 048
     Dates: start: 20140617, end: 20140623
  17. SOLACET F [Concomitant]
     Indication: FLUID REPLACEMENT
     Dosage: 500 ML, DAILY
     Route: 042
     Dates: start: 20140615, end: 20140615
  18. FLUOCINONIDE. [Concomitant]
     Active Substance: FLUOCINONIDE
     Indication: ECZEMA
     Dosage: 1 UNK, PRN
     Route: 062
     Dates: start: 20130430, end: 20140616

REACTIONS (1)
  - Pneumonia [Recovered/Resolved]

NARRATIVE: CASE EVENT DATE: 20140620
